FAERS Safety Report 4644661-0 (Version None)
Quarter: 2005Q2

REPORT INFORMATION
  Report Type: 
  Country: None (occurrence: None)
  Receive Date: 20050426
  Receipt Date: 20050422
  Transmission Date: 20051028
  Serious: Yes (Life-Threatening, Hospitalization)
  Sender: FDA-Public Use
  Company Number: PHBS2005CA05824

PATIENT
  Age: 42 Year
  Sex: Male

DRUGS (4)
  1. DESIPRAMINE HCL [Suspect]
     Dosage: 300 MG, QD
  2. DESIPRAMINE HCL [Suspect]
     Dosage: 400 MG, QD
  3. OMEPRAZOLE [Concomitant]
     Dosage: 20 MG, QD
  4. BROMOCRIPTINE MESYLATE [Suspect]
     Dosage: 2.5 MG, QD

REACTIONS (4)
  - BRUGADA SYNDROME [None]
  - ELECTROCARDIOGRAM ABNORMAL [None]
  - IMPLANTABLE DEFIBRILLATOR INSERTION [None]
  - VENTRICULAR FIBRILLATION [None]
